FAERS Safety Report 8138164-9 (Version None)
Quarter: 2012Q1

REPORT INFORMATION
  Report Type: 
  Country: None (occurrence: None)
  Receive Date: 20120215
  Receipt Date: 20120208
  Transmission Date: 20120608
  Serious: Yes (Other)
  Sender: FDA-Public Use
  Company Number: US-TEVA-318634USA

PATIENT
  Sex: Female

DRUGS (1)
  1. PHENTERMINE [Suspect]
     Indication: OBESITY

REACTIONS (5)
  - TENOSYNOVITIS [None]
  - MYCOSIS FUNGOIDES [None]
  - DRUG INEFFECTIVE [None]
  - FEELING OF RELAXATION [None]
  - ENERGY INCREASED [None]
